FAERS Safety Report 4732545-9 (Version None)
Quarter: 2005Q3

REPORT INFORMATION
  Report Type: 
  Country: None (occurrence: None)
  Receive Date: 20050801
  Receipt Date: 20050801
  Transmission Date: 20060218
  Serious: Yes (Hospitalization)
  Sender: FDA-Public Use
  Company Number: None

PATIENT
  Age: 78 Year
  Sex: Male
  Weight: 71 kg

DRUGS (4)
  1. WARFARIN [Suspect]
     Indication: ATRIAL FLUTTER
     Dosage: 2 MG QD X 4MG T,R,SAT
     Dates: start: 20041004, end: 20050404
  2. PREDNISONE [Suspect]
     Dates: start: 20050329, end: 20050415
  3. CEFPODOXIME [Suspect]
     Indication: THYROID DISORDER
     Dosage: 200 BID
     Dates: start: 20020101
  4. LEVOTHYROXINE [Suspect]
     Dosage: 0.112 MG QD

REACTIONS (5)
  - CHRONIC OBSTRUCTIVE PULMONARY DISEASE [None]
  - FALL [None]
  - HAEMATOCRIT DECREASED [None]
  - HAEMATOMA [None]
  - INTERNATIONAL NORMALISED RATIO INCREASED [None]
